FAERS Safety Report 17459262 (Version 10)
Quarter: 2023Q2

REPORT INFORMATION
  Report Type: Spontaneous
  Country: IN (occurrence: IN)
  Receive Date: 20200226
  Receipt Date: 20230519
  Transmission Date: 20230721
  Serious: Yes (Other)
  Sender: FDA-Public Use
  Company Number: IN-PFIZER INC-2019531336

PATIENT
  Age: 50 Year
  Sex: Male

DRUGS (3)
  1. SUTENT [Suspect]
     Active Substance: SUNITINIB MALATE
     Indication: Metastatic renal cell carcinoma
     Dosage: ONCE A DAY 50 MG 2 WEEKS ON AND 1 WEEK OFF
     Route: 048
     Dates: start: 20191205
  2. SUTENT [Suspect]
     Active Substance: SUNITINIB MALATE
     Dosage: 50 MG FOR 2 WEEKS ON 3 WEEK OFF
     Route: 048
  3. SUTENT [Suspect]
     Active Substance: SUNITINIB MALATE
     Dosage: FOR 10 DAYS ON 10 DAYS OFF
     Route: 048

REACTIONS (24)
  - Gastric ulcer [Unknown]
  - Nephrolithiasis [Unknown]
  - Blood creatinine increased [Unknown]
  - Single functional kidney [Unknown]
  - Blood thyroid stimulating hormone increased [Unknown]
  - Diarrhoea [Unknown]
  - Mouth ulceration [Unknown]
  - Palmar-plantar erythrodysaesthesia syndrome [Unknown]
  - Fatigue [Unknown]
  - Decreased appetite [Unknown]
  - Hypertension [Unknown]
  - Nausea [Unknown]
  - Vomiting [Unknown]
  - Hypercholesterolaemia [Unknown]
  - Asthenia [Unknown]
  - Appetite disorder [Unknown]
  - Frequent bowel movements [Unknown]
  - Blood urea increased [Unknown]
  - Liver function test abnormal [Unknown]
  - Blood triglycerides increased [Unknown]
  - Amylase increased [Unknown]
  - Vitamin D abnormal [Unknown]
  - Off label use [Unknown]
  - Product use issue [Unknown]
